FAERS Safety Report 25237362 (Version 4)
Quarter: 2025Q2

REPORT INFORMATION
  Report Type: Spontaneous
  Country: JP (occurrence: JP)
  Receive Date: 20250425
  Receipt Date: 20250530
  Transmission Date: 20250717
  Serious: Yes (Hospitalization)
  Sender: ABBVIE
  Company Number: JP-ABBVIE-6146129

PATIENT
  Age: 66 Year
  Sex: Female
  Weight: 73 kg

DRUGS (5)
  1. HUMIRA [Suspect]
     Active Substance: ADALIMUMAB
     Indication: Colitis ulcerative
     Route: 058
     Dates: start: 202101, end: 202110
  2. HUMIRA [Suspect]
     Active Substance: ADALIMUMAB
     Indication: Arthralgia
     Route: 058
     Dates: start: 20161027, end: 201803
  3. HUMIRA [Suspect]
     Active Substance: ADALIMUMAB
     Indication: Disease complication
     Route: 058
     Dates: start: 20160929
  4. HUMIRA [Suspect]
     Active Substance: ADALIMUMAB
     Route: 058
     Dates: start: 20161013
  5. HUMIRA [Suspect]
     Active Substance: ADALIMUMAB
     Route: 058
     Dates: start: 202009, end: 202010

REACTIONS (2)
  - Atrial tachycardia [Recovered/Resolved]
  - Squamous cell carcinoma of skin [Recovered/Resolved]

NARRATIVE: CASE EVENT DATE: 20201001
